FAERS Safety Report 23992725 (Version 3)
Quarter: 2024Q3

REPORT INFORMATION
  Report Type: Other
  Country: US (occurrence: US)
  Receive Date: 20240620
  Receipt Date: 20240815
  Transmission Date: 20241016
  Serious: No
  Sender: TRAVERE THERAPEUTICS
  Company Number: US-TRAVERE-2024TVT00557

PATIENT
  Age: 67 Year
  Sex: Male

DRUGS (2)
  1. FILSPARI [Suspect]
     Active Substance: SPARSENTAN
     Indication: Proteinuria
     Dosage: 1 TABLET BY MOUTH 1 TIME A DAY FOR DAYS 1-14.
     Route: 048
     Dates: start: 202405
  2. FILSPARI [Suspect]
     Active Substance: SPARSENTAN
     Indication: Chronic kidney disease
     Dosage: 2 TABLETS BY MOUTH 1 TIME A DAY ON DAYS 15-30 (MAINTENANCE DOSE)
     Route: 048
     Dates: start: 202406

REACTIONS (4)
  - Fatigue [None]
  - Blood pressure decreased [Unknown]
  - Product use in unapproved indication [Unknown]
  - Asthenia [None]

NARRATIVE: CASE EVENT DATE: 20240501
